FAERS Safety Report 4901556-2 (Version None)
Quarter: 2006Q1

REPORT INFORMATION
  Report Type: 
  Country: None (occurrence: None)
  Receive Date: 20060206
  Receipt Date: 20050214
  Transmission Date: 20060701
  Serious: No
  Sender: FDA-Public Use
  Company Number: US-BRISTOL-MYERS SQUIBB COMPANY-12861365

PATIENT
  Age: 44 Year
  Sex: Female

DRUGS (1)
  1. TAXOL [Suspect]
     Route: 042
     Dates: start: 20050207, end: 20050207

REACTIONS (1)
  - PHLEBITIS [None]
